FAERS Safety Report 7767942-0 (Version None)
Quarter: 2011Q3

REPORT INFORMATION
  Report Type: 
  Country: None (occurrence: None)
  Receive Date: 20110922
  Receipt Date: 20100301
  Transmission Date: 20111222
  Serious: Yes (Other)
  Sender: FDA-Public Use
  Company Number: US-ASTRAZENECA-2009UW11806

PATIENT
  Age: 18214 Day
  Sex: Male
  Weight: 104.6 kg

DRUGS (4)
  1. RISPERIDONE [Concomitant]
     Dosage: 1 TO 4 MG
     Dates: start: 19961220
  2. LITHIUM CARBONATE [Concomitant]
     Route: 048
     Dates: start: 19980715
  3. HALOPERIDOL [Concomitant]
     Route: 048
     Dates: start: 20040203
  4. SEROQUEL [Suspect]
     Dosage: 100 TO 200 MG
     Route: 048
     Dates: start: 20011102

REACTIONS (3)
  - INSULIN-REQUIRING TYPE 2 DIABETES MELLITUS [None]
  - DIABETES MELLITUS [None]
  - DIABETIC HYPEROSMOLAR COMA [None]
